FAERS Safety Report 5643691-X (Version None)
Quarter: 2008Q1

REPORT INFORMATION
  Report Type: 
  Country: None (occurrence: None)
  Receive Date: 20080228
  Receipt Date: 20080218
  Transmission Date: 20080703
  Serious: Yes (Hospitalization, Other)
  Sender: FDA-Public Use
  Company Number: BE-ABBOTT-07P-013-0426633-00

PATIENT
  Sex: Female

DRUGS (3)
  1. HUMIRA [Suspect]
     Indication: RHEUMATOID ARTHRITIS
     Route: 058
     Dates: start: 20050606, end: 20071003
  2. METHOTREXATE [Concomitant]
     Indication: RHEUMATOID ARTHRITIS
  3. NIMESULIDE [Concomitant]
     Indication: RHEUMATOID ARTHRITIS

REACTIONS (7)
  - ABSCESS INTESTINAL [None]
  - DIVERTICULITIS [None]
  - DIVERTICULUM [None]
  - HYPOKALAEMIA [None]
  - INFECTION [None]
  - PERITONITIS [None]
  - RENAL FAILURE [None]
